FAERS Safety Report 6805673-1 (Version None)
Quarter: 2010Q2

REPORT INFORMATION
  Report Type: 
  Country: None (occurrence: None)
  Receive Date: 20100628
  Receipt Date: 20080205
  Transmission Date: 20101027
  Serious: No
  Sender: FDA-Public Use
  Company Number: US-PFIZER INC-2008011261

PATIENT

DRUGS (4)
  1. GEODON [Suspect]
     Dates: start: 19820101
  2. ZYPREXA [Suspect]
     Dates: start: 19820101
  3. ZOLOFT [Concomitant]
     Dates: start: 19820101
  4. EFFEXOR XR [Concomitant]
     Dates: start: 19820101

REACTIONS (1)
  - MUSCLE SPASMS [None]
